FAERS Safety Report 7214656-1 (Version None)
Quarter: 2011Q1

REPORT INFORMATION
  Report Type: 
  Country: None (occurrence: None)
  Receive Date: 20110107
  Receipt Date: 20110105
  Transmission Date: 20110831
  Serious: Yes (Other)
  Sender: FDA-Public Use
  Company Number: US-B.I. PHARMACEUTICALS,INC./RIDGEFIELD-2010-BP-06949BP

PATIENT
  Age: 74 Year
  Sex: Female

DRUGS (8)
  1. MICARDIS [Suspect]
     Indication: HYPERTENSION
     Route: 048
     Dates: start: 20040101
  2. HYDROCODONE [Concomitant]
     Indication: PAIN
  3. MICARDIS [Suspect]
     Dosage: 80 MG
     Route: 048
     Dates: start: 20100501, end: 20100620
  4. VITAMIN D [Concomitant]
     Indication: ARTHRITIS
  5. IMIPRAM TAB [Concomitant]
     Indication: DEPRESSION
  6. ALPRAZOLAM [Concomitant]
     Indication: ANXIETY
  7. METHADONE [Concomitant]
     Indication: ARTHRITIS
  8. CELEBREX [Concomitant]
     Indication: ARTHRITIS

REACTIONS (1)
  - PRECANCEROUS SKIN LESION [None]
